FAERS Safety Report 10521278 (Version 1)
Quarter: 2014Q4

REPORT INFORMATION
  Report Type: Spontaneous
  Country: JP (occurrence: JP)
  Receive Date: 20141016
  Receipt Date: 20141016
  Transmission Date: 20150528
  Serious: Yes (Other)
  Sender: FDA-Public Use
  Company Number: JP-ASTRAZENECA-2014SE77684

PATIENT
  Age: 84 Year
  Sex: Female

DRUGS (2)
  1. 10 CONCOMITANT MEDICATIONS [Concomitant]
     Route: 048
  2. SEROQUEL [Suspect]
     Active Substance: QUETIAPINE FUMARATE
     Indication: PRODUCT USED FOR UNKNOWN INDICATION
     Route: 048
     Dates: start: 201401

REACTIONS (1)
  - Hepatic function abnormal [Unknown]
